FAERS Safety Report 10524088 (Version 1)
Quarter: 2014Q4

REPORT INFORMATION
  Report Type: Spontaneous
  Country: US (occurrence: None)
  Receive Date: 20141015
  Receipt Date: 20141015
  Transmission Date: 20150528
  Serious: Yes (Other)
  Sender: FDA-Public Use
  Company Number: None

PATIENT
  Age: 57 Year
  Sex: Female
  Weight: 97.52 kg

DRUGS (2)
  1. SYNTHROID [Suspect]
     Active Substance: LEVOTHYROXINE SODIUM
     Indication: MAJOR DEPRESSION
     Route: 048
     Dates: start: 2014, end: 201409
  2. SYNTHROID [Suspect]
     Active Substance: LEVOTHYROXINE SODIUM
     Indication: HYPOTHYROIDISM
     Route: 048
     Dates: start: 2014, end: 201409

REACTIONS (5)
  - Product substitution issue [None]
  - Fatigue [None]
  - Depression [None]
  - Obesity [None]
  - Therapeutic response changed [None]

NARRATIVE: CASE EVENT DATE: 2014
